FAERS Safety Report 11643932 (Version 1)
Quarter: 2015Q4

REPORT INFORMATION
  Report Type: Spontaneous
  Country: US (occurrence: None)
  Receive Date: 20151019
  Receipt Date: 20151019
  Transmission Date: 20160304
  Serious: Yes (Disabling)
  Sender: FDA-Public Use
  Company Number: None

PATIENT
  Age: 67 Year
  Sex: Female
  Weight: 68.95 kg

DRUGS (21)
  1. MULTI VITAMIN [Concomitant]
     Active Substance: VITAMINS
  2. PROBIOTIC [Concomitant]
     Active Substance: PROBIOTICS NOS
  3. TUMERIC L GLUTITHIONE [Concomitant]
  4. BIOTIN [Concomitant]
     Active Substance: BIOTIN
  5. KRILL [Concomitant]
  6. RED YEAST RICE [Concomitant]
     Active Substance: DIETARY SUPPLEMENT
  7. ALPHA LIPOIC ACID [Concomitant]
     Active Substance: .ALPHA.-LIPOIC ACID
  8. VITAMIN E [Concomitant]
     Active Substance: .ALPHA.-TOCOPHEROL
  9. CLARITIN [Concomitant]
     Active Substance: LORATADINE
  10. VITAMIN C [Concomitant]
     Active Substance: ASCORBIC ACID
  11. FISH OIL [Concomitant]
     Active Substance: FISH OIL
  12. ACETYL L CARNITINE [Concomitant]
  13. ATENOLOL. [Concomitant]
     Active Substance: ATENOLOL
  14. LEVOFLOXACIN. [Suspect]
     Active Substance: LEVOFLOXACIN
     Indication: OROPHARYNGEAL PAIN
     Dosage: 7 PILLS
     Route: 048
     Dates: start: 20141111, end: 20141118
  15. LEVOFLOXACIN. [Suspect]
     Active Substance: LEVOFLOXACIN
     Indication: PSEUDOMONAS TEST POSITIVE
     Dosage: 7 PILLS
     Route: 048
     Dates: start: 20141111, end: 20141118
  16. VITAMIN D [Concomitant]
     Active Substance: CHOLECALCIFEROL
  17. CLONOPIN [Concomitant]
     Active Substance: CLONAZEPAM
  18. COQ10 [Concomitant]
     Active Substance: UBIDECARENONE
  19. VITAMIN B12 [Concomitant]
     Active Substance: CYANOCOBALAMIN
  20. MUCINEX MAX [Concomitant]
  21. CALCIUM [Concomitant]
     Active Substance: CALCIUM

REACTIONS (25)
  - Joint stiffness [None]
  - Stress [None]
  - Pyrexia [None]
  - Headache [None]
  - Pain [None]
  - Vomiting [None]
  - Migraine with aura [None]
  - Influenza [None]
  - Urinary incontinence [None]
  - Fatigue [None]
  - Insomnia [None]
  - Flatulence [None]
  - Joint swelling [None]
  - Back pain [None]
  - Arthralgia [None]
  - Pain in extremity [None]
  - Urinary tract infection [None]
  - Dysstasia [None]
  - Constipation [None]
  - Blepharospasm [None]
  - Abnormal dreams [None]
  - Malaise [None]
  - Rash [None]
  - Blood pressure decreased [None]
  - Haematochezia [None]

NARRATIVE: CASE EVENT DATE: 20151018
